FAERS Safety Report 8581052-4 (Version None)
Quarter: 2012Q3

REPORT INFORMATION
  Report Type: 
  Country: None (occurrence: None)
  Receive Date: 20120809
  Receipt Date: 20120730
  Transmission Date: 20120928
  Serious: Yes (Hospitalization)
  Sender: FDA-Public Use
  Company Number: US-BAYER-2012-018964

PATIENT
  Age: 42 Year
  Sex: Female

DRUGS (3)
  1. BEYAZ [Concomitant]
  2. CLINDAMYCIN [Concomitant]
     Dosage: APPLY TO SCALP BUMPS BID
     Route: 061
  3. YAZ [Suspect]
     Indication: HORMONE LEVEL ABNORMAL
     Dosage: UNK
     Dates: start: 20080801, end: 20110901

REACTIONS (8)
  - ANXIETY [None]
  - MUSCLE STRAIN [None]
  - OEDEMA PERIPHERAL [None]
  - PAIN [None]
  - PSYCHOLOGICAL TRAUMA [None]
  - DEEP VEIN THROMBOSIS [None]
  - ANHEDONIA [None]
  - FEAR [None]
